FAERS Safety Report 8612020-1 (Version None)
Quarter: 2012Q3

REPORT INFORMATION
  Report Type: 
  Country: None (occurrence: None)
  Receive Date: 20120822
  Receipt Date: 20120816
  Transmission Date: 20120928
  Serious: Yes (Other)
  Sender: FDA-Public Use
  Company Number: GB-VIIV HEALTHCARE LIMITED-B0823495A

PATIENT
  Age: 46 Year
  Sex: Female

DRUGS (3)
  1. ABACAVIR SULFATE [Suspect]
     Indication: HIV INFECTION
     Route: 048
  2. EFAVIRENZ [Concomitant]
  3. RALTEGRAVIR [Concomitant]

REACTIONS (1)
  - ACUTE CORONARY SYNDROME [None]
